FAERS Safety Report 16279749 (Version 5)
Quarter: 2019Q3

REPORT INFORMATION
  Report Type: Spontaneous
  Country: US (occurrence: US)
  Receive Date: 20190507
  Receipt Date: 20190927
  Transmission Date: 20191004
  Serious: No
  Sender: FDA-Public Use
  Company Number: US-BIOGEN-2019BI00732844

PATIENT
  Sex: Female

DRUGS (6)
  1. TYSABRI [Suspect]
     Active Substance: NATALIZUMAB
     Indication: MULTIPLE SCLEROSIS
     Route: 065
     Dates: start: 20171020, end: 20190322
  2. MIRAPAX [Concomitant]
     Route: 065
  3. VITAMIN C [Concomitant]
     Active Substance: ASCORBIC ACID
     Route: 065
  4. TECFIDERA [Suspect]
     Active Substance: DIMETHYL FUMARATE
     Indication: MULTIPLE SCLEROSIS
     Route: 065
     Dates: start: 20190424
  5. TECFIDERA [Suspect]
     Active Substance: DIMETHYL FUMARATE
     Route: 065
  6. IRON [Concomitant]
     Active Substance: IRON
     Route: 065

REACTIONS (11)
  - Gastric ulcer [Not Recovered/Not Resolved]
  - Nausea [Recovered/Resolved]
  - Accidental overdose [Unknown]
  - Product dose omission [Unknown]
  - Disease risk factor [Not Recovered/Not Resolved]
  - Alopecia [Not Recovered/Not Resolved]
  - Fatigue [Not Recovered/Not Resolved]
  - Rash macular [Not Recovered/Not Resolved]
  - Heart rate increased [Recovered/Resolved]
  - Nasopharyngitis [Unknown]
  - Hot flush [Recovered/Resolved]
